FAERS Safety Report 7957568-8 (Version None)
Quarter: 2011Q4

REPORT INFORMATION
  Report Type: 
  Country: None (occurrence: None)
  Receive Date: 20111205
  Receipt Date: 20111128
  Transmission Date: 20120403
  Serious: Yes (Life-Threatening, Hospitalization)
  Sender: FDA-Public Use
  Company Number: RO-GLAXOSMITHKLINE-B0765146A

PATIENT
  Age: 16 Year
  Sex: Male

DRUGS (1)
  1. CEFUROXIME [Suspect]
     Indication: LUDWIG ANGINA
     Dosage: 500MG PER DAY
     Route: 048
     Dates: start: 20111116, end: 20111116

REACTIONS (5)
  - ANAPHYLACTIC SHOCK [None]
  - RASH [None]
  - PRODUCT QUALITY ISSUE [None]
  - FACE OEDEMA [None]
  - BLOOD PRESSURE DECREASED [None]
